FAERS Safety Report 23306457 (Version 4)
Quarter: 2024Q1

REPORT INFORMATION
  Report Type: Report from Study
  Country: GB (occurrence: GB)
  Receive Date: 20231218
  Receipt Date: 20240219
  Transmission Date: 20240410
  Serious: Yes (Hospitalization, Other)
  Sender: FDA-Public Use
  Company Number: GB-Merck Healthcare KGaA-2023494335

PATIENT
  Sex: Female

DRUGS (1)
  1. MAVENCLAD [Suspect]
     Active Substance: CLADRIBINE
     Indication: Multiple sclerosis
     Dosage: YEAR 1 WEEK 1 THERAPY AT A DOSE OF 2 TABLETS ON DAYS 1 TO 3 AND 1 TABLET ON DAYS 4 AND 5
     Route: 048
     Dates: start: 20231201

REACTIONS (8)
  - Cerebrovascular accident [Unknown]
  - Mobility decreased [Not Recovered/Not Resolved]
  - Muscular weakness [Unknown]
  - Hypoaesthesia [Unknown]
  - Confusional state [Unknown]
  - Viral infection [Unknown]
  - Urinary tract infection [Unknown]
  - Weight decreased [Unknown]
